FAERS Safety Report 4526668-7 (Version None)
Quarter: 2004Q4

REPORT INFORMATION
  Report Type: 
  Country: None (occurrence: None)
  Receive Date: 20041214
  Receipt Date: 20041206
  Transmission Date: 20050328
  Serious: Yes (Hospitalization)
  Sender: FDA-Public Use
  Company Number: JP-GLAXOSMITHKLINE-B0359330A

PATIENT
  Age: 75 Year
  Sex: Female

DRUGS (4)
  1. VALTREX [Suspect]
     Indication: HERPES ZOSTER
     Dosage: 1000MG THREE TIMES PER DAY
     Route: 048
     Dates: start: 20041129, end: 20041202
  2. TEGRETOL [Suspect]
     Route: 048
  3. LOXONIN [Concomitant]
     Route: 048
  4. UNKNOWN [Concomitant]
     Route: 065

REACTIONS (2)
  - MALAISE [None]
  - RENAL IMPAIRMENT [None]
